FAERS Safety Report 5024668-4 (Version None)
Quarter: 2006Q2

REPORT INFORMATION
  Report Type: 
  Country: None (occurrence: None)
  Receive Date: 20060613
  Receipt Date: 20060517
  Transmission Date: 20061013
  Serious: Yes (Hospitalization)
  Sender: FDA-Public Use
  Company Number: RU-ROCHE-448070

PATIENT
  Age: 40 Year
  Sex: Male
  Weight: 80 kg

DRUGS (2)
  1. PEG-INTERFERON A-2A (RO 25-8310) [Suspect]
     Route: 058
     Dates: start: 20060505, end: 20060508
  2. RIBAVIRIN [Suspect]
     Route: 048
     Dates: start: 20060505, end: 20060508

REACTIONS (4)
  - CRANIAL NEUROPATHY [None]
  - EYE PAIN [None]
  - INFLUENZA LIKE ILLNESS [None]
  - STRABISMUS [None]
